FAERS Safety Report 11648022 (Version 1)
Quarter: 2015Q4

REPORT INFORMATION
  Report Type: Spontaneous
  Country: US (occurrence: None)
  Receive Date: 20151020
  Receipt Date: 20151020
  Transmission Date: 20160304
  Serious: Yes (Hospitalization, Other)
  Sender: FDA-Public Use
  Company Number: None

PATIENT
  Age: 58 Year
  Sex: Female
  Weight: 150 kg

DRUGS (4)
  1. COUMADIN [Suspect]
     Active Substance: WARFARIN SODIUM
     Indication: KNEE OPERATION
     Dates: start: 20031205
  2. SYNTHROID [Concomitant]
     Active Substance: LEVOTHYROXINE SODIUM
  3. CORDISOL [Concomitant]
  4. FLURDROCORTISON [Concomitant]

REACTIONS (3)
  - Dizziness [None]
  - Back pain [None]
  - Adrenal haemorrhage [None]

NARRATIVE: CASE EVENT DATE: 20031212
